FAERS Safety Report 21229009 (Version 2)
Quarter: 2022Q4

REPORT INFORMATION
  Report Type: Report from Study
  Country: US (occurrence: US)
  Receive Date: 20220818
  Receipt Date: 20221116
  Transmission Date: 20230112
  Serious: Yes (Other)
  Sender: FDA-Public Use
  Company Number: US-ABBVIE-21K-163-4170847-00

PATIENT
  Sex: Female

DRUGS (1)
  1. IMBRUVICA [Suspect]
     Active Substance: IBRUTINIB
     Indication: Non-Hodgkin^s lymphoma
     Route: 048
     Dates: start: 202101

REACTIONS (9)
  - Dacryocystorhinostomy [Unknown]
  - Eye operation [Unknown]
  - Dry skin [Not Recovered/Not Resolved]
  - Skin fissures [Recovered/Resolved]
  - Lymphadenopathy [Not Recovered/Not Resolved]
  - Madarosis [Unknown]
  - Amino acid level increased [Unknown]
  - Increased tendency to bruise [Unknown]
  - Muscle spasms [Unknown]

NARRATIVE: CASE EVENT DATE: 20210101
